FAERS Safety Report 18819222 (Version 1)
Quarter: 2021Q1

REPORT INFORMATION
  Report Type: Spontaneous
  Country: US (occurrence: US)
  Receive Date: 20210201
  Receipt Date: 20210201
  Transmission Date: 20210419
  Serious: No
  Sender: FDA-Public Use
  Company Number: NVSC2021US011850

PATIENT
  Sex: Female

DRUGS (1)
  1. RYDAPT [Suspect]
     Active Substance: MIDOSTAURIN
     Indication: LEUKAEMIA
     Dosage: UNK
     Route: 065

REACTIONS (8)
  - Decreased appetite [Unknown]
  - Muscle atrophy [Unknown]
  - Impaired healing [Unknown]
  - Drug intolerance [Unknown]
  - Asthenia [Unknown]
  - Weight decreased [Unknown]
  - Fluid retention [Unknown]
  - Nausea [Unknown]
